FAERS Safety Report 17288349 (Version 1)
Quarter: 2020Q1

REPORT INFORMATION
  Report Type: Spontaneous
  Country: GB (occurrence: GB)
  Receive Date: 20200120
  Receipt Date: 20200120
  Transmission Date: 20200409
  Serious: Yes (Other)
  Sender: FDA-Public Use
  Company Number: GB-TEVA-2020-GB-1171084

PATIENT
  Sex: Male

DRUGS (4)
  1. ICTASTAN [Suspect]
     Active Substance: EMTRICITABINE\TENOFOVIR DISOPROXIL SUCCINATE
     Indication: PRODUCT USED FOR UNKNOWN INDICATION
     Dosage: 1 DOSAGE FORM:  200 MG OF EMTRICITABINE AND 245 MG OF TENOFOVIR DISOPROXIL
     Route: 048
  2. SODIUM VALPROATE [Concomitant]
     Active Substance: VALPROATE SODIUM
  3. HYOSCINE [Concomitant]
     Active Substance: SCOPOLAMINE
  4. OMEPRAZOLE. [Concomitant]
     Active Substance: OMEPRAZOLE

REACTIONS (2)
  - Oesophageal ulcer [Unknown]
  - Eosinophil count increased [Unknown]
